FAERS Safety Report 12113956 (Version 1)
Quarter: 2016Q1

REPORT INFORMATION
  Report Type: Spontaneous
  Country: US (occurrence: US)
  Receive Date: 20160225
  Receipt Date: 20160225
  Transmission Date: 20160526
  Serious: No
  Sender: FDA-Public Use
  Company Number: US-PFIZER INC-2016040704

PATIENT
  Age: 51 Year
  Sex: Female

DRUGS (15)
  1. LISINOPRIL. [Concomitant]
     Active Substance: LISINOPRIL
     Dosage: 10 MG, DAILY
     Route: 048
  2. FEXOFENADINE HCL [Concomitant]
     Active Substance: FEXOFENADINE HYDROCHLORIDE
     Dosage: 10 MG, DAILY
  3. CALCIUM [Concomitant]
     Active Substance: CALCIUM
     Dosage: 500 MG, DAILY
     Route: 048
  4. EXEMESTANE. [Concomitant]
     Active Substance: EXEMESTANE
     Dosage: 25 MG, DAILY
     Route: 048
  5. ONDANSETRON [Concomitant]
     Active Substance: ONDANSETRON
     Indication: NAUSEA
     Dosage: 8 MG, AS NEEDED (EVERY 6 HOURS)
     Route: 048
  6. PANTOPRAZOLE [Concomitant]
     Active Substance: PANTOPRAZOLE SODIUM
     Dosage: 40 MG, DAILY
     Route: 048
  7. SIMVASTATIN. [Concomitant]
     Active Substance: SIMVASTATIN
     Dosage: 10 MG, DAILY  (EVERY DAY BEFORE SLEEP)
     Route: 048
  8. LEVOTHYROXINE. [Concomitant]
     Active Substance: LEVOTHYROXINE
     Dosage: 112 UG, DAILY
     Route: 048
  9. AROMASIN [Suspect]
     Active Substance: EXEMESTANE
     Dosage: 25 MG, 1X/DAY
  10. MAGNESIUM [Concomitant]
     Active Substance: MAGNESIUM
     Dosage: 250 MG, DAILY
     Route: 048
  11. VITAMIN D3 [Concomitant]
     Active Substance: CHOLECALCIFEROL
     Dosage: 1000 IU, DAILY
     Route: 048
  12. ALBUTEROL SULFATE. [Concomitant]
     Active Substance: ALBUTEROL SULFATE
     Dosage: 90 UG, AS NEEDED (EVERY 4-6 HOURS)
     Route: 045
  13. URSODIOL. [Concomitant]
     Active Substance: URSODIOL
     Dosage: 500 MG, 3X/DAY
     Route: 048
  14. ASCORBIC ACID. [Concomitant]
     Active Substance: ASCORBIC ACID
     Dosage: 500 MG, DAILY
     Route: 048
  15. FLUTICASONE PROPIONATE. [Concomitant]
     Active Substance: FLUTICASONE PROPIONATE
     Dosage: 44 UG, 2X/DAY
     Route: 045

REACTIONS (3)
  - Liver disorder [Unknown]
  - Malaise [Unknown]
  - Intentional product misuse [Unknown]
